FAERS Safety Report 6395639-0 (Version None)
Quarter: 2009Q4

REPORT INFORMATION
  Report Type: 
  Country: None (occurrence: None)
  Receive Date: 20091009
  Receipt Date: 20091002
  Transmission Date: 20100525
  Serious: Yes (Disabling)
  Sender: FDA-Public Use
  Company Number: FR-AVENTIS-200913663FR

PATIENT
  Age: 63 Year
  Sex: Female

DRUGS (1)
  1. FLAGYL [Suspect]
     Dates: start: 20010101

REACTIONS (4)
  - GAIT DISTURBANCE [None]
  - IMPAIRED DRIVING ABILITY [None]
  - NEURITIS [None]
  - OVERDOSE [None]
